FAERS Safety Report 9924961 (Version 1)
Quarter: 2014Q1

REPORT INFORMATION
  Report Type: Spontaneous
  Country: CA (occurrence: None)
  Receive Date: 20140221
  Receipt Date: 20140221
  Transmission Date: 20141002
  Serious: Yes (Hospitalization)
  Sender: FDA-Public Use
  Company Number: CA-014750

PATIENT
  Age: 91 Year
  Sex: Male

DRUGS (1)
  1. FIRMAGON [Suspect]
     Indication: PROSTATE CANCER
     Route: 058
     Dates: start: 20140121, end: 20140124

REACTIONS (1)
  - Myocardial infarction [None]
